FAERS Safety Report 6531111-2 (Version None)
Quarter: 2010Q1

REPORT INFORMATION
  Report Type: 
  Country: None (occurrence: None)
  Receive Date: 20100108
  Receipt Date: 20100104
  Transmission Date: 20100710
  Serious: Yes (Other)
  Sender: FDA-Public Use
  Company Number: US-TEVA-219843USA

PATIENT
  Age: 13 Year
  Sex: Female

DRUGS (6)
  1. VINCRISTINE SULFATE 1MG/ML;1MG/1 ML VIAL;2MG/2ML VIAL [Suspect]
     Indication: EXTRA-OSSEOUS EWING'S SARCOMA
     Dosage: SYSTEMIC
  2. METHOTREXATE [Suspect]
     Indication: EXTRA-OSSEOUS EWING'S SARCOMA
     Dosage: 12MG/M^2X5
     Route: 037
  3. CYTARABINE [Suspect]
     Indication: EXTRA-OSSEOUS EWING'S SARCOMA
     Dosage: 50MG/M^2X4
     Route: 037
  4. HYDROCORTISONE [Suspect]
     Indication: EXTRA-OSSEOUS EWING'S SARCOMA
     Dosage: 500MG/M2X5
     Route: 037
  5. DACTINOMYCIN [Suspect]
     Indication: EXTRA-OSSEOUS EWING'S SARCOMA
     Dosage: SYSTEMIC
  6. CYCLOPHOSPHAMIDE [Suspect]
     Indication: EXTRA-OSSEOUS EWING'S SARCOMA
     Dosage: SYSTEMIC

REACTIONS (1)
  - MYELITIS [None]
